FAERS Safety Report 16950927 (Version 1)
Quarter: 2019Q4

REPORT INFORMATION
  Report Type: Spontaneous
  Country: US (occurrence: US)
  Receive Date: 20191023
  Receipt Date: 20191023
  Transmission Date: 20200122
  Serious: No
  Sender: FDA-Public Use
  Company Number: US-TEVA-2019-US-1125752

PATIENT
  Sex: Female

DRUGS (2)
  1. CLONAZEPAM. [Suspect]
     Active Substance: CLONAZEPAM
     Indication: ANXIETY
  2. CLONAZEPAM. [Suspect]
     Active Substance: CLONAZEPAM
     Indication: PANIC DISORDER
     Route: 065
     Dates: start: 201909

REACTIONS (6)
  - Fatigue [Unknown]
  - Muscle spasms [Unknown]
  - Anxiety [Unknown]
  - Poor quality sleep [Unknown]
  - Eye pruritus [Unknown]
  - Balance disorder [Unknown]

NARRATIVE: CASE EVENT DATE: 201909
